FAERS Safety Report 19647579 (Version 2)
Quarter: 2021Q3

REPORT INFORMATION
  Report Type: Spontaneous
  Country: US (occurrence: US)
  Receive Date: 20210802
  Receipt Date: 20210928
  Transmission Date: 20211014
  Serious: No
  Sender: FDA-Public Use
  Company Number: NVSC2021US170894

PATIENT
  Age: 48 Year
  Sex: Female

DRUGS (1)
  1. ESTRADIOL. [Suspect]
     Active Substance: ESTRADIOL
     Indication: PRODUCT USED FOR UNKNOWN INDICATION
     Dosage: 1 DF, QD,  (0.0375MG/24H 8TTS)
     Route: 065

REACTIONS (5)
  - Rash [Unknown]
  - Product adhesion issue [Unknown]
  - Hot flush [Unknown]
  - Anxiety [Unknown]
  - Irritability [Unknown]

NARRATIVE: CASE EVENT DATE: 20210720
